FAERS Safety Report 20971077 (Version 1)
Quarter: 2022Q2

REPORT INFORMATION
  Report Type: Spontaneous
  Country: US (occurrence: US)
  Receive Date: 20220616
  Receipt Date: 20220616
  Transmission Date: 20220720
  Serious: No
  Sender: FDA-Public Use
  Company Number: US-SA-SAC20220609002018

PATIENT
  Age: 49 Year
  Sex: Female

DRUGS (13)
  1. DUPIXENT [Suspect]
     Active Substance: DUPILUMAB
     Indication: Dermatitis atopic
     Dosage: 300 MG, QOW
     Route: 058
     Dates: start: 20220418
  2. DUPIXENT [Suspect]
     Active Substance: DUPILUMAB
     Indication: Pruritus
  3. SODIUM CHLORIDE [Concomitant]
     Active Substance: SODIUM CHLORIDE
  4. FLUOCINONIDE [Concomitant]
     Active Substance: FLUOCINONIDE
  5. TRIAMCINOLONE ACETONIDE [Concomitant]
     Active Substance: TRIAMCINOLONE ACETONIDE
  6. CLOBETASOL [Concomitant]
     Active Substance: CLOBETASOL
  7. PROTOPIC [Concomitant]
     Active Substance: TACROLIMUS
  8. ADVIL [Concomitant]
     Active Substance: IBUPROFEN
  9. VENTOLIN HFA [Concomitant]
     Active Substance: ALBUTEROL SULFATE
     Dosage: 90 MCG HFA AER AD,
  10. HUMIRA [Concomitant]
     Active Substance: ADALIMUMAB
     Dosage: 10MG/0.1ML SYRINGEKIT
  11. BENADRYL [Concomitant]
     Active Substance: DIPHENHYDRAMINE HYDROCHLORIDE
  12. METHOTREXATE [Concomitant]
     Active Substance: METHOTREXATE
  13. LINZESS [Concomitant]
     Active Substance: LINACLOTIDE

REACTIONS (4)
  - Eye inflammation [Unknown]
  - Eye pain [Unknown]
  - Nasal dryness [Unknown]
  - Product use in unapproved indication [Unknown]

NARRATIVE: CASE EVENT DATE: 20220101
